FAERS Safety Report 25455470 (Version 1)
Quarter: 2025Q2

REPORT INFORMATION
  Report Type: Spontaneous
  Country: US (occurrence: US)
  Receive Date: 20250619
  Receipt Date: 20250619
  Transmission Date: 20250716
  Serious: No
  Sender: PADAGIS
  Company Number: US-PADAGIS-2025PAD00722

PATIENT

DRUGS (2)
  1. TRETINOIN [Suspect]
     Active Substance: TRETINOIN
     Indication: Product used for unknown indication
     Route: 065
  2. TRETINOIN [Suspect]
     Active Substance: TRETINOIN
     Route: 065

REACTIONS (2)
  - Dry skin [Unknown]
  - Skin exfoliation [Unknown]
